FAERS Safety Report 4491930-3 (Version None)
Quarter: 2004Q4

REPORT INFORMATION
  Report Type: 
  Country: None (occurrence: None)
  Receive Date: 20041103
  Receipt Date: 20041022
  Transmission Date: 20050328
  Serious: Yes (Life-Threatening)
  Sender: FDA-Public Use
  Company Number: JP-BRISTOL-MYERS SQUIBB COMPANY-12741971

PATIENT
  Age: 22 Year
  Sex: Male

DRUGS (5)
  1. STOCRIN CAPS [Suspect]
     Indication: HIV INFECTION
     Route: 048
     Dates: start: 20040213, end: 20040221
  2. REYATAZ [Suspect]
     Indication: HIV INFECTION
     Route: 048
     Dates: start: 20040219, end: 20040220
  3. KALETRA [Suspect]
     Indication: HIV INFECTION
     Dosage: 2/22/04: DOSE REDUCED 4 CAPS AM + 3 CAPS PM, 2/23/04: 3 CAPS TWICE/DAY.
     Route: 048
     Dates: start: 20040213, end: 20040302
  4. VIREAD [Suspect]
     Indication: HIV INFECTION
     Route: 048
     Dates: start: 20040213, end: 20040302
  5. EPIVIR [Concomitant]
     Route: 048
     Dates: start: 19980301, end: 20040302

REACTIONS (3)
  - BRADYCARDIA [None]
  - PYREXIA [None]
  - RASH [None]
